FAERS Safety Report 9579305 (Version 2)
Quarter: 2013Q4

REPORT INFORMATION
  Report Type: Spontaneous
  Country: US (occurrence: US)
  Receive Date: 20131001
  Receipt Date: 20131001
  Transmission Date: 20140711
  Serious: No
  Sender: FDA-Public Use
  Company Number: US-AMGEN-USASP2013016549

PATIENT
  Age: 28 Year
  Sex: Female

DRUGS (3)
  1. ENBREL [Suspect]
     Indication: PSORIASIS
     Dosage: 50 MG, QWK
     Dates: start: 20121217, end: 201302
  2. ENBREL [Suspect]
     Indication: PSORIATIC ARTHROPATHY
  3. METHOTREXATE [Concomitant]
     Dosage: 15 MG, UNK
     Route: 048
     Dates: start: 201212

REACTIONS (4)
  - Tooth infection [Recovered/Resolved]
  - Fungal infection [Not Recovered/Not Resolved]
  - Influenza [Recovered/Resolved]
  - Sinusitis [Recovered/Resolved]
